FAERS Safety Report 9828152 (Version 2)
Quarter: 2014Q1

REPORT INFORMATION
  Report Type: Spontaneous
  Country: IL (occurrence: IL)
  Receive Date: 20140117
  Receipt Date: 20140122
  Transmission Date: 20141002
  Serious: Yes (Life-Threatening)
  Sender: FDA-Public Use
  Company Number: IL-GLAXOSMITHKLINE-B0961078A

PATIENT
  Age: 47 Year
  Sex: Female

DRUGS (3)
  1. BENLYSTA [Suspect]
     Indication: SYSTEMIC LUPUS ERYTHEMATOSUS
     Dosage: 10MGK PER DAY
     Route: 042
     Dates: start: 20080226, end: 201311
  2. IMURAN [Concomitant]
     Indication: SYSTEMIC LUPUS ERYTHEMATOSUS
     Dates: start: 200706
  3. MTX [Concomitant]
     Dosage: 15MG WEEKLY
     Dates: start: 2006

REACTIONS (1)
  - Non-small cell lung cancer [Unknown]
